FAERS Safety Report 18053752 (Version 1)
Quarter: 2020Q3

REPORT INFORMATION
  Report Type: Spontaneous
  Country: US (occurrence: US)
  Receive Date: 20200721
  Receipt Date: 20200721
  Transmission Date: 20201103
  Serious: No
  Sender: FDA-Public Use
  Company Number: None

PATIENT
  Age: 30 Year
  Weight: 78.75 kg

DRUGS (2)
  1. MIRTAZAPINE. [Suspect]
     Active Substance: MIRTAZAPINE
     Indication: INSOMNIA
     Dosage: ?          QUANTITY:30 TABLET(S);?
     Route: 048
     Dates: start: 20191009, end: 20200721
  2. MIRTAZAPINE. [Suspect]
     Active Substance: MIRTAZAPINE
     Indication: DEPRESSION
     Dosage: ?          QUANTITY:30 TABLET(S);?
     Route: 048
     Dates: start: 20191009, end: 20200721

REACTIONS (3)
  - Product physical issue [None]
  - Vomiting [None]
  - Migraine [None]

NARRATIVE: CASE EVENT DATE: 20200718
